FAERS Safety Report 4642912-X (Version None)
Quarter: 2005Q2

REPORT INFORMATION
  Report Type: 
  Country: None (occurrence: None)
  Receive Date: 20050421
  Receipt Date: 20050408
  Transmission Date: 20051028
  Serious: Yes (Death)
  Sender: FDA-Public Use
  Company Number: HQWYE955111APR05

PATIENT
  Age: 68 Year
  Sex: Male

DRUGS (1)
  1. AMIODARONE HCL [Suspect]
     Indication: ATRIAL FIBRILLATION

REACTIONS (8)
  - ATRIOVENTRICULAR BLOCK COMPLETE [None]
  - CARDIOGENIC SHOCK [None]
  - DRUG LEVEL INCREASED [None]
  - HYPOTENSION [None]
  - ISCHAEMIC HEPATITIS [None]
  - MULTI-ORGAN FAILURE [None]
  - PACEMAKER COMPLICATION [None]
  - RENAL FAILURE ACUTE [None]
